FAERS Safety Report 4357560-9 (Version None)
Quarter: 2004Q2

REPORT INFORMATION
  Report Type: 
  Country: None (occurrence: None)
  Receive Date: 20040510
  Receipt Date: 20040423
  Transmission Date: 20050107
  Serious: Yes (Hospitalization)
  Sender: FDA-Public Use
  Company Number: 193394

PATIENT
  Age: 44 Year
  Sex: Male

DRUGS (1)
  1. AVONEX [Suspect]
     Indication: MULTIPLE SCLEROSIS
     Dosage: 30 MCG QW IM
     Route: 030
     Dates: start: 20040107, end: 20040220

REACTIONS (4)
  - BLOOD PHOSPHORUS DECREASED [None]
  - HEPATIC ENZYME INCREASED [None]
  - LYMPHOPENIA [None]
  - MUSCULAR WEAKNESS [None]
